FAERS Safety Report 7991039-8 (Version None)
Quarter: 2011Q4

REPORT INFORMATION
  Report Type: 
  Country: None (occurrence: None)
  Receive Date: 20111219
  Receipt Date: 20111216
  Transmission Date: 20120403
  Serious: Yes (Hospitalization)
  Sender: FDA-Public Use
  Company Number: IE-ROCHE-1018782

PATIENT
  Sex: Female

DRUGS (2)
  1. SODIUM CHLORIDE [Concomitant]
  2. ROCEPHIN [Suspect]
     Indication: SALMONELLA BACTERAEMIA
     Route: 042
     Dates: start: 20111118, end: 20111126

REACTIONS (3)
  - HEADACHE [None]
  - RASH [None]
  - MALAISE [None]
